FAERS Safety Report 5902743-7 (Version None)
Quarter: 2008Q3

REPORT INFORMATION
  Report Type: 
  Country: None (occurrence: None)
  Receive Date: 20080930
  Receipt Date: 20080918
  Transmission Date: 20090109
  Serious: Yes (Other)
  Sender: FDA-Public Use
  Company Number: IT-RANBAXY-2008RR-18048

PATIENT
  Age: 61 Year
  Sex: Male

DRUGS (9)
  1. SIMVASTATINA RANBAXY 10MG COMPRESSE RIVESTITE CON FILM [Suspect]
     Dosage: 10 MG, QD
  2. SIMVASTATINA RANBAXY 10MG COMPRESSE RIVESTITE CON FILM [Suspect]
     Dosage: UNK MG, QD
  3. ATORVASTATIN CALCIUM [Suspect]
     Dosage: 10 MG, QD
  4. ROSUVASTATIN [Suspect]
     Dosage: 10 MG, QD
  5. GREEN TEA [Suspect]
  6. SIMVASTATIN [Concomitant]
  7. GREEN TEA [Concomitant]
  8. SIMVASTATIN [Concomitant]
     Dosage: 20 MG, QD
  9. AMLODIPINE [Concomitant]
     Indication: HYPERTENSION
     Dosage: 10 MG, QD

REACTIONS (3)
  - DRUG INTERACTION [None]
  - MUSCLE SPASMS [None]
  - MYALGIA [None]
